FAERS Safety Report 4801233-2 (Version None)
Quarter: 2005Q4

REPORT INFORMATION
  Report Type: 
  Country: None (occurrence: None)
  Receive Date: 20051012
  Receipt Date: 20050930
  Transmission Date: 20060501
  Serious: Yes (Hospitalization)
  Sender: FDA-Public Use
  Company Number: 197077

PATIENT
  Age: 30 Year
  Sex: Female

DRUGS (4)
  1. AVONEX [Suspect]
     Indication: RELAPSING-REMITTING MULTIPLE SCLEROSIS
     Dosage: 30 UG; QW; IM
     Route: 030
     Dates: start: 20000101, end: 20031001
  2. AVONEX [Suspect]
     Indication: RELAPSING-REMITTING MULTIPLE SCLEROSIS
     Dosage: 30 UG;QW; IM
     Route: 030
     Dates: start: 20031001, end: 20040513
  3. DIANE [Concomitant]
  4. PARACETAMOL [Concomitant]

REACTIONS (17)
  - ARTHRALGIA [None]
  - CHEST PAIN [None]
  - FACIAL NEURALGIA [None]
  - HYPERSENSITIVITY [None]
  - INFLAMMATION [None]
  - INFLUENZA LIKE ILLNESS [None]
  - INJECTION SITE PAIN [None]
  - INJECTION SITE PRURITUS [None]
  - MYALGIA [None]
  - NEURALGIA [None]
  - ODYNOPHAGIA [None]
  - PAIN [None]
  - PAIN IN EXTREMITY [None]
  - RASH PAPULAR [None]
  - RASH PRURITIC [None]
  - SENSATION OF HEAVINESS [None]
  - URTICARIA [None]
